FAERS Safety Report 6458802-6 (Version None)
Quarter: 2009Q4

REPORT INFORMATION
  Report Type: 
  Country: None (occurrence: None)
  Receive Date: 20091127
  Receipt Date: 20091120
  Transmission Date: 20100525
  Serious: Yes (Hospitalization, Other)
  Sender: FDA-Public Use
  Company Number: NO-BRISTOL-MYERS SQUIBB COMPANY-13532973

PATIENT
  Age: 71 Year
  Sex: Male
  Weight: 101 kg

DRUGS (4)
  1. IRBESARTAN [Suspect]
     Indication: HYPERTENSION
     Dates: start: 20040402, end: 20060702
  2. CLOPIDOGREL BISULFATE [Suspect]
     Indication: PROPHYLAXIS
     Dates: start: 20040405
  3. ASPIRIN [Suspect]
     Indication: PROPHYLAXIS
     Dates: start: 20040405
  4. WARFARIN SODIUM [Concomitant]
     Dates: start: 20050824, end: 20060715

REACTIONS (9)
  - DIARRHOEA [None]
  - FACIAL BONES FRACTURE [None]
  - FALL [None]
  - FEMORAL NECK FRACTURE [None]
  - HAEMORRHAGE INTRACRANIAL [None]
  - LOCALISED INFECTION [None]
  - OPERATIVE HAEMORRHAGE [None]
  - PNEUMONIA [None]
  - URINARY TRACT INFECTION [None]
